FAERS Safety Report 11669235 (Version 3)
Quarter: 2016Q1

REPORT INFORMATION
  Report Type: Spontaneous
  Country: US (occurrence: US)
  Receive Date: 20151027
  Receipt Date: 20160218
  Transmission Date: 20160525
  Serious: Yes (Death, Hospitalization, Congenital Anomaly, Other)
  Sender: FDA-Public Use
  Company Number: US-FRI-1000080399

PATIENT
  Age: 0 Day
  Sex: Female

DRUGS (1)
  1. LEXAPRO [Suspect]
     Active Substance: ESCITALOPRAM OXALATE
     Dosage: 10MG
     Route: 064

REACTIONS (30)
  - Hemivertebra [Fatal]
  - Macrocephaly [Fatal]
  - Renal failure [Unknown]
  - Cerebral ventricle dilatation [Unknown]
  - Limb malformation [Fatal]
  - Congenital hydrocephalus [Fatal]
  - Sepsis [Fatal]
  - Malnutrition [Unknown]
  - Multiple congenital abnormalities [Fatal]
  - Hyponatraemia [Unknown]
  - Premature baby [Unknown]
  - Anuria [Unknown]
  - Pulmonary oedema [Unknown]
  - Congenital spinal fusion [Fatal]
  - Maternal condition affecting foetus [Unknown]
  - Pulmonary vascular disorder [Unknown]
  - Bradycardia [Unknown]
  - Irritability [Unknown]
  - Aqueductal stenosis [Fatal]
  - Shock [Unknown]
  - Atrial septal defect [Fatal]
  - Truncus arteriosus persistent [Fatal]
  - Microtia [Fatal]
  - Congenital hydronephrosis [Fatal]
  - Seizure [Unknown]
  - Neonatal respiratory distress syndrome [Unknown]
  - Sepsis neonatal [Recovered/Resolved]
  - Cardiomegaly [Unknown]
  - Hypotension [Unknown]
  - Tachypnoea [Unknown]

NARRATIVE: CASE EVENT DATE: 20121016
